FAERS Safety Report 22601849 (Version 1)
Quarter: 2023Q2

REPORT INFORMATION
  Report Type: Spontaneous
  Country: ES (occurrence: ES)
  Receive Date: 20230614
  Receipt Date: 20230614
  Transmission Date: 20230722
  Serious: Yes (Death)
  Sender: FDA-Public Use
  Company Number: ES-RECORDATI-2023003631

PATIENT
  Age: 62 Year
  Sex: Male

DRUGS (8)
  1. PASIREOTIDE [Suspect]
     Active Substance: PASIREOTIDE
     Indication: Ectopic ACTH syndrome
     Dosage: 1.2 MG, QD (0.6 MILLIGRAM, BID)
     Route: 058
  2. PASIREOTIDE [Suspect]
     Active Substance: PASIREOTIDE
     Indication: Cushing^s syndrome
  3. OCTREOTIDE [Suspect]
     Active Substance: OCTREOTIDE
     Indication: Lung neoplasm malignant
     Dosage: UNK
     Route: 065
  4. OCTREOTIDE [Suspect]
     Active Substance: OCTREOTIDE
  5. OCTREOTIDE [Suspect]
     Active Substance: OCTREOTIDE
  6. METYRAPONE [Suspect]
     Active Substance: METYRAPONE
     Indication: Ectopic ACTH syndrome
     Dosage: 750 MG, QD (250 MILLIGRAM, TID)
     Route: 065
  7. METYRAPONE [Suspect]
     Active Substance: METYRAPONE
     Indication: Cushing^s syndrome
  8. SUNITINIB [Suspect]
     Active Substance: SUNITINIB
     Indication: Lung neoplasm malignant
     Dosage: UNK
     Route: 065

REACTIONS (2)
  - Neoplasm progression [Fatal]
  - Drug ineffective for unapproved indication [Recovered/Resolved]
